FAERS Safety Report 9282334 (Version 1)
Quarter: 2013Q2

REPORT INFORMATION
  Report Type: Spontaneous
  Country: US (occurrence: None)
  Receive Date: 20130509
  Receipt Date: 20130509
  Transmission Date: 20140414
  Serious: No
  Sender: FDA-Public Use
  Company Number: None

PATIENT
  Sex: 0

DRUGS (1)
  1. LEVOXYL [Suspect]
     Dosage: 3 PI;;S CONSUMED
     Dates: start: 20130417, end: 20130419

REACTIONS (1)
  - Skin odour abnormal [None]
